FAERS Safety Report 13790793 (Version 3)
Quarter: 2017Q3

REPORT INFORMATION
  Report Type: Spontaneous
  Country: TW (occurrence: TW)
  Receive Date: 20170725
  Receipt Date: 20170831
  Transmission Date: 20171127
  Serious: Yes (Hospitalization, Other)
  Sender: FDA-Public Use
  Company Number: TW-BAYER-2017-135441

PATIENT
  Age: 65 Year
  Sex: Male

DRUGS (1)
  1. ASPIRIN. [Suspect]
     Active Substance: ASPIRIN
     Indication: THROMBOSIS PROPHYLAXIS
     Dosage: UNK
     Dates: start: 2008

REACTIONS (10)
  - Fall [None]
  - Cerebral thrombosis [None]
  - Thrombotic stroke [Not Recovered/Not Resolved]
  - Hypoaesthesia [None]
  - Muscular weakness [None]
  - Limb discomfort [None]
  - Hemiparesis [None]
  - Dyspnoea [None]
  - Fatigue [None]
  - Dyspnoea exertional [None]

NARRATIVE: CASE EVENT DATE: 2016
